FAERS Safety Report 20873152 (Version 8)
Quarter: 2022Q3

REPORT INFORMATION
  Report Type: Spontaneous
  Country: US (occurrence: US)
  Receive Date: 20220525
  Receipt Date: 20220824
  Transmission Date: 20221027
  Serious: Yes (Hospitalization, Other)
  Sender: FDA-Public Use
  Company Number: US-PFIZER INC-202200736329

PATIENT
  Age: 61 Year
  Sex: Female

DRUGS (1)
  1. IBRANCE [Suspect]
     Active Substance: PALBOCICLIB
     Indication: Neoplasm malignant
     Dosage: 125 MG

REACTIONS (9)
  - Multiple sclerosis [Unknown]
  - Pneumothorax [Unknown]
  - Off label use [Unknown]
  - Product use issue [Unknown]
  - Neoplasm recurrence [Unknown]
  - Pain [Unknown]
  - Gait disturbance [Unknown]
  - Osteoporosis [Unknown]
  - Weight decreased [Unknown]
